FAERS Safety Report 10900459 (Version 1)
Quarter: 2015Q1

REPORT INFORMATION
  Report Type: Spontaneous
  Country: TN (occurrence: None)
  Receive Date: 20150303
  Receipt Date: 20150303
  Transmission Date: 20150721
  Serious: Yes (Hospitalization)
  Sender: FDA-Public Use
  Company Number: NSR_01976_2015

PATIENT
  Age: 03 Month
  Sex: Male
  Weight: 6 kg

DRUGS (1)
  1. PROPRANOLOL [Suspect]
     Active Substance: PROPRANOLOL\PROPRANOLOL HYDROCHLORIDE
     Indication: HAEMANGIOMA
     Route: 048

REACTIONS (4)
  - Feeding disorder [None]
  - Cardio-respiratory arrest [None]
  - Dyspepsia [None]
  - Bronchiolitis [None]
